FAERS Safety Report 16093755 (Version 1)
Quarter: 2019Q1

REPORT INFORMATION
  Report Type: Spontaneous
  Country: GB (occurrence: GB)
  Receive Date: 20190320
  Receipt Date: 20190320
  Transmission Date: 20190418
  Serious: Yes (Other)
  Sender: FDA-Public Use
  Company Number: GB-ACCORD-113674

PATIENT
  Age: 71 Year
  Sex: Female
  Weight: 61 kg

DRUGS (4)
  1. DIPROBASE [Concomitant]
     Active Substance: CHLOROCRESOL
     Dosage: APPLY
     Dates: start: 20140624
  2. FLUPENTIXOL [Concomitant]
     Active Substance: FLUPENTIXOL
     Dosage: 1 IN THE MORNING 1 AT NIGHT.
     Dates: start: 20180601
  3. CIMETIDINE [Concomitant]
     Active Substance: CIMETIDINE
     Dates: start: 20150708
  4. AMLODIPINE [Suspect]
     Active Substance: AMLODIPINE BESYLATE
     Indication: PRODUCT USED FOR UNKNOWN INDICATION
     Dates: start: 20181112

REACTIONS (1)
  - Sleep disorder [Recovering/Resolving]
